FAERS Safety Report 6390332-2 (Version None)
Quarter: 2009Q4

REPORT INFORMATION
  Report Type: 
  Country: None (occurrence: None)
  Receive Date: 20091006
  Receipt Date: 20090928
  Transmission Date: 20100525
  Serious: Yes (Hospitalization)
  Sender: FDA-Public Use
  Company Number: BE-ABBOTT-09P-013-0599398-00

PATIENT
  Sex: Female

DRUGS (5)
  1. HUMIRA [Suspect]
     Indication: PSORIATIC ARTHROPATHY
     Route: 058
  2. LEDERTREXATE [Concomitant]
     Indication: ARTHRITIS
  3. ARAVA [Concomitant]
     Indication: ARTHRITIS
  4. MOBIC [Concomitant]
     Indication: ARTHRITIS
  5. TRIBVIT [Concomitant]
     Indication: DRUG USE FOR UNKNOWN INDICATION

REACTIONS (2)
  - LIGAMENT RUPTURE [None]
  - LIGAMENT SPRAIN [None]
